FAERS Safety Report 13772131 (Version 1)
Quarter: 2017Q3

REPORT INFORMATION
  Report Type: Spontaneous
  Country: US (occurrence: US)
  Receive Date: 20170720
  Receipt Date: 20170720
  Transmission Date: 20171127
  Serious: Yes (Other)
  Sender: FDA-Public Use
  Company Number: US-THE MEDICINES COMPANY-US-MDCO-16-00493

PATIENT

DRUGS (1)
  1. MINOCIN [Suspect]
     Active Substance: MINOCYCLINE HYDROCHLORIDE
     Indication: STENOTROPHOMONAS INFECTION
     Dosage: NOT REPORTED

REACTIONS (2)
  - Neutropenia [Recovering/Resolving]
  - Off label use [Unknown]
